FAERS Safety Report 10891008 (Version 1)
Quarter: 2015Q1

REPORT INFORMATION
  Report Type: Spontaneous
  Country: AU (occurrence: AU)
  Receive Date: 20150305
  Receipt Date: 20150305
  Transmission Date: 20150721
  Serious: Yes (Life-Threatening)
  Sender: FDA-Public Use
  Company Number: AU-PFIZER INC-2015043612

PATIENT
  Age: 38 Year
  Sex: Female
  Weight: 60 kg

DRUGS (5)
  1. METOCLOPRAMIDE HCL [Suspect]
     Active Substance: METOCLOPRAMIDE HYDROCHLORIDE
     Indication: SENSORY DISTURBANCE
     Dosage: 1 DF, SINGLE
     Route: 042
     Dates: start: 19990901
  2. LIGNOCAINE [Suspect]
     Active Substance: LIDOCAINE HYDROCHLORIDE
     Indication: SENSORY DISTURBANCE
     Dosage: 1 DF, UNK
     Route: 042
     Dates: start: 19990901
  3. MORPHINE HCL [Suspect]
     Active Substance: MORPHINE HYDROCHLORIDE
     Indication: SENSORY DISTURBANCE
     Dosage: 1 DF, SINGLE
     Route: 042
     Dates: start: 19990901
  4. ROCURONIUM BROMIDE. [Suspect]
     Active Substance: ROCURONIUM BROMIDE
     Indication: SENSORY DISTURBANCE
     Dosage: 1 DF, SINGLE
     Route: 042
     Dates: start: 19990901
  5. PROPOFOL. [Suspect]
     Active Substance: PROPOFOL
     Indication: SENSORY DISTURBANCE
     Dosage: 1 DF, SINGLE
     Route: 042
     Dates: start: 19990901

REACTIONS (4)
  - Hypotension [Recovered/Resolved]
  - Bronchospasm [Recovered/Resolved]
  - Rash erythematous [Recovered/Resolved]
  - Tachycardia [Recovered/Resolved]

NARRATIVE: CASE EVENT DATE: 19990901
